FAERS Safety Report 24583944 (Version 3)
Quarter: 2025Q1

REPORT INFORMATION
  Report Type: Spontaneous
  Country: US (occurrence: US)
  Receive Date: 20241106
  Receipt Date: 20250324
  Transmission Date: 20250409
  Serious: Yes (Other)
  Sender: BRISTOL-MYERS SQUIBB COMPANY
  Company Number: US-BRISTOL-MYERS SQUIBB COMPANY-2024-173174

PATIENT
  Age: 72 Year
  Sex: Male

DRUGS (1)
  1. REVLIMID [Suspect]
     Active Substance: LENALIDOMIDE
     Indication: Plasma cell myeloma
     Dosage: FREQUENCY: QD FOR 3 WEEKS ON, 1 WEEK OFF?21 DAYS ON 7 DAYS OFF
     Route: 048

REACTIONS (3)
  - Hypothyroidism [Unknown]
  - Drug ineffective [Unknown]
  - Tumour marker increased [Unknown]
